FAERS Safety Report 7787261-6 (Version None)
Quarter: 2011Q3

REPORT INFORMATION
  Report Type: 
  Country: None (occurrence: None)
  Receive Date: 20110929
  Receipt Date: 20100923
  Transmission Date: 20111222
  Serious: Yes (Life-Threatening, Hospitalization)
  Sender: FDA-Public Use
  Company Number: US-BAYER-201021603NA

PATIENT
  Age: 27 Year
  Sex: Female
  Weight: 124.72 kg

DRUGS (8)
  1. YAZ [Suspect]
     Indication: MENSTRUATION IRREGULAR
     Dosage: AS USED DOSE: UNK
     Route: 048
     Dates: start: 20031204, end: 20080205
  2. ZITHROMAX [Concomitant]
     Dosage: UNK
     Dates: start: 20080301
  3. FLEXERIL [Concomitant]
     Dosage: 10 MG, UNK
     Dates: end: 20080301
  4. MOTRIN [Concomitant]
     Dosage: 800 MG, TID
  5. YASMIN [Suspect]
     Indication: MENSTRUATION IRREGULAR
     Dosage: AS USED DOSE: UNK
     Route: 048
     Dates: start: 20031204, end: 20080205
  6. NAPROXEN SODIUM [Concomitant]
     Dosage: UNK
     Dates: start: 20080109
  7. PROPOXYPHENE NAPSYLATE W/ ACETAMINOPHEN [Concomitant]
     Dosage: UNK
     Dates: start: 20080205
  8. ZITHROMAX [Concomitant]
     Dosage: UNK
     Dates: start: 20080304

REACTIONS (2)
  - DEEP VEIN THROMBOSIS [None]
  - PULMONARY EMBOLISM [None]
